FAERS Safety Report 11681121 (Version 7)
Quarter: 2017Q4

REPORT INFORMATION
  Report Type: Spontaneous
  Country: OM (occurrence: OM)
  Receive Date: 20151029
  Receipt Date: 20171123
  Transmission Date: 20180320
  Serious: Yes (Other)
  Sender: FDA-Public Use
  Company Number: OM-CIPLA LTD.-2015OM08213

PATIENT

DRUGS (3)
  1. HYDRALAZINE HCL [Concomitant]
     Active Substance: HYDRALAZINE HYDROCHLORIDE
     Indication: HYPERTENSION
     Dosage: 4 MG/KG, PER DAY
     Route: 065
  2. FLUCONAZOLE. [Interacting]
     Active Substance: FLUCONAZOLE
     Dosage: UNK
     Route: 065
  3. AMLODIPINE [Suspect]
     Active Substance: AMLODIPINE BESYLATE
     Indication: HYPERTENSION
     Dosage: 2.5MG OD (0.4 MG/KG/DAY)
     Route: 065

REACTIONS (3)
  - Drug interaction [Unknown]
  - Ascites [Recovered/Resolved]
  - Generalised oedema [Recovered/Resolved]
